FAERS Safety Report 6022930-X (Version None)
Quarter: 2008Q4

REPORT INFORMATION
  Report Type: 
  Country: None (occurrence: None)
  Receive Date: 20081222
  Receipt Date: 20080908
  Transmission Date: 20090506
  Serious: No
  Sender: FDA-Public Use
  Company Number: ALL1-2008-02551

PATIENT
  Age: 42 Year
  Sex: Female

DRUGS (2)
  1. VYVANSE [Suspect]
     Indication: DISTURBANCE IN ATTENTION
     Dosage: 50 MG, 1X/DAY:QD, ORAL
     Route: 048
     Dates: start: 20080801, end: 20080908
  2. KLONOPIN [Concomitant]

REACTIONS (2)
  - CONDITION AGGRAVATED [None]
  - RESTLESS LEGS SYNDROME [None]
